FAERS Safety Report 9284290 (Version 1)
Quarter: 2013Q2

REPORT INFORMATION
  Report Type: Spontaneous
  Country: ES (occurrence: ES)
  Receive Date: 20130510
  Receipt Date: 20130510
  Transmission Date: 20140414
  Serious: Yes (Life-Threatening, Hospitalization, Disabling)
  Sender: FDA-Public Use
  Company Number: ES-ACTAVIS-2013-08690

PATIENT
  Age: 69 Year
  Sex: Male

DRUGS (1)
  1. PACLITAXEL (UNKNOWN) [Suspect]
     Indication: OESOPHAGEAL CARCINOMA
     Dosage: 80 MG, UNKNOWN
     Route: 042
     Dates: start: 20130404, end: 20130412

REACTIONS (4)
  - Cardio-respiratory arrest [Recovering/Resolving]
  - Erythema [Recovering/Resolving]
  - Pruritus generalised [Recovering/Resolving]
  - Nausea [Recovering/Resolving]
